FAERS Safety Report 8842861 (Version 7)
Quarter: 2014Q1

REPORT INFORMATION
  Report Type: Spontaneous
  Country: US (occurrence: US)
  Receive Date: 20121016
  Receipt Date: 20140131
  Transmission Date: 20141002
  Serious: Yes (Hospitalization, Other)
  Sender: FDA-Public Use
  Company Number: US-ACTELION-A-NJ2011-57491

PATIENT
  Age: 67 Year
  Sex: Male

DRUGS (13)
  1. VELETRI [Suspect]
     Indication: PULMONARY ARTERIAL HYPERTENSION
     Dosage: 20 NG/KG, PER MIN
     Route: 042
     Dates: start: 20110324
  2. COUMADIN [Concomitant]
  3. SPIRONOLACTONE [Concomitant]
  4. ALLEGRA [Concomitant]
  5. FUROSEMIDE [Concomitant]
  6. IMODIUM [Concomitant]
  7. PROTONIX [Concomitant]
  8. CALCIUM + VITAMIN D [Concomitant]
  9. FERROUS SULFATE [Concomitant]
  10. PREDNISONE [Concomitant]
  11. PROCHLORPERAZINE [Concomitant]
  12. SPIRIVA [Concomitant]
  13. TYLENOL W/CODEINE NO. 3 [Concomitant]

REACTIONS (22)
  - Renal failure [Unknown]
  - Hernia [Unknown]
  - Inguinal hernia repair [Unknown]
  - Pulmonary hypertension [Unknown]
  - Right ventricular failure [Unknown]
  - Dyspnoea [Unknown]
  - Ascites [Unknown]
  - Paracentesis [Unknown]
  - Hepatic congestion [Unknown]
  - Oedema [Unknown]
  - Nausea [Unknown]
  - Vomiting [Unknown]
  - Fluid retention [Unknown]
  - Cardiac failure congestive [Unknown]
  - Oedema peripheral [Unknown]
  - Pain [Unknown]
  - Hypertension [Unknown]
  - Treatment noncompliance [Unknown]
  - Gastrointestinal disorder [Unknown]
  - Depression [Unknown]
  - Headache [Unknown]
  - Pain in extremity [Unknown]
